FAERS Safety Report 8926046 (Version 1)
Quarter: 2012Q4

REPORT INFORMATION
  Report Type: 
  Country: US (occurrence: US)
  Receive Date: 20121126
  Receipt Date: 20121126
  Transmission Date: 20130627
  Serious: No
  Sender: FDA-Public Use
  Company Number: US-009507513-1211USA007677

PATIENT
  Sex: Female

DRUGS (13)
  1. VICTRELIS [Suspect]
     Indication: HEPATITIS C
     Route: 048
  2. RIBASPHERE [Suspect]
  3. PEGASYS [Suspect]
  4. PROTONIX [Concomitant]
  5. PLAQUENIL [Concomitant]
  6. GLUCOTROL [Concomitant]
  7. METFORMIN [Concomitant]
  8. GABAPENTIN [Concomitant]
  9. WELLBUTRIN [Concomitant]
  10. FERROUS SULFATE [Concomitant]
  11. ZYRTEC [Concomitant]
  12. CHOLECALCIFEROL [Concomitant]
  13. BENTYL [Concomitant]

REACTIONS (1)
  - Rash pruritic [Not Recovered/Not Resolved]
